FAERS Safety Report 23106591 (Version 2)
Quarter: 2023Q4

REPORT INFORMATION
  Report Type: Spontaneous
  Country: PT (occurrence: PT)
  Receive Date: 20231026
  Receipt Date: 20231227
  Transmission Date: 20240110
  Serious: Yes (Hospitalization)
  Sender: FDA-Public Use
  Company Number: PT-KERNPHARMA-202302068

PATIENT
  Age: 15 Year
  Sex: Female

DRUGS (2)
  1. OLANZAPINE [Suspect]
     Active Substance: OLANZAPINE
     Indication: Cotard^s syndrome
     Dosage: 5 MILLIGRAM, ONCE A DAY (ADMINISTERED DURING THE 1ST TO THE 18TH DAY OF HOSPITALIZATION)
     Route: 048
  2. DIAZEPAM [Concomitant]
     Active Substance: DIAZEPAM
     Indication: Cotard^s syndrome
     Dosage: 10 MILLIGRAM, ONCE A DAY (ADMINISTERED DURING THE 1ST TO THE 7TH DAY OF HOSPITALIZATION)
     Route: 065

REACTIONS (2)
  - Thyroxine decreased [Recovered/Resolved]
  - Off label use [Recovered/Resolved]
